FAERS Safety Report 6854785-5 (Version None)
Quarter: 2010Q3

REPORT INFORMATION
  Report Type: 
  Country: None (occurrence: None)
  Receive Date: 20100717
  Receipt Date: 20080110
  Transmission Date: 20110219
  Serious: No
  Sender: FDA-Public Use
  Company Number: US-PFIZER INC-2008003910

PATIENT
  Sex: Female
  Weight: 100 kg

DRUGS (4)
  1. CHANTIX [Suspect]
     Indication: SMOKING CESSATION THERAPY
     Route: 048
     Dates: start: 20071103, end: 20071201
  2. DIOVAN HCT [Concomitant]
     Indication: HYPERTENSION
  3. ALKA-SELTZER [Concomitant]
     Indication: DYSPEPSIA
  4. ALKA-SELTZER [Concomitant]

REACTIONS (4)
  - BACK PAIN [None]
  - CHEST PAIN [None]
  - DISTURBANCE IN ATTENTION [None]
  - SOMNOLENCE [None]
